FAERS Safety Report 8189917-2 (Version None)
Quarter: 2012Q1

REPORT INFORMATION
  Report Type: 
  Country: None (occurrence: None)
  Receive Date: 20120307
  Receipt Date: 20120228
  Transmission Date: 20120608
  Serious: Yes (Other)
  Sender: FDA-Public Use
  Company Number: JP-ASTELLAS-2012JP001656

PATIENT
  Age: 46 Year
  Sex: Female

DRUGS (6)
  1. SALIVEHT TEIJIN [Concomitant]
     Dosage: UNK
     Route: 055
     Dates: end: 20120228
  2. VESICARE [Suspect]
     Indication: HYPERTONIC BLADDER
     Dosage: 5 MG, UNKNOWN/D
     Route: 048
     Dates: start: 20110614, end: 20120228
  3. IBRUPROFEN [Concomitant]
     Dosage: UNK
     Route: 065
     Dates: end: 20120228
  4. URSO 250 [Concomitant]
     Dosage: 600 MG, UNKNOWN/D
     Route: 048
     Dates: end: 20120228
  5. LACTOFERRIN [Concomitant]
     Dosage: UNK
     Route: 065
     Dates: end: 20120228
  6. VISRRAT [Concomitant]
     Dosage: UNK
     Route: 065
     Dates: end: 20120228

REACTIONS (1)
  - LIVER DISORDER [None]
